FAERS Safety Report 22266459 (Version 1)
Quarter: 2023Q2

REPORT INFORMATION
  Report Type: Spontaneous
  Country: CA (occurrence: CA)
  Receive Date: 20230428
  Receipt Date: 20230428
  Transmission Date: 20230722
  Serious: Yes (Disabling)
  Sender: FDA-Public Use
  Company Number: CA-GLAXOSMITHKLINE INC.-CA2015GSK035247

PATIENT
  Age: 78 Year
  Sex: Female

DRUGS (3)
  1. DABRAFENIB [Suspect]
     Active Substance: DABRAFENIB
     Indication: Conjunctival melanoma
     Dosage: 150 MG, BID
     Route: 048
     Dates: start: 20131126
  2. DABRAFENIB [Suspect]
     Active Substance: DABRAFENIB
     Dosage: 70 MG, BID
     Route: 065
     Dates: start: 20140415, end: 20140505
  3. DABRAFENIB [Suspect]
     Active Substance: DABRAFENIB
     Dosage: RESTARTED AT HALF-DOSE MONTH LATER
     Route: 065

REACTIONS (1)
  - Guillain-Barre syndrome [Recovering/Resolving]

NARRATIVE: CASE EVENT DATE: 20140101
